FAERS Safety Report 15935442 (Version 1)
Quarter: 2019Q1

REPORT INFORMATION
  Report Type: Spontaneous
  Country: US (occurrence: US)
  Receive Date: 20190207
  Receipt Date: 20190207
  Transmission Date: 20190417
  Serious: Yes (Hospitalization, Other)
  Sender: FDA-Public Use
  Company Number: US-BRISTOL-MYERS SQUIBB COMPANY-BMS-2019-009969

PATIENT
  Sex: Male
  Weight: 65.7 kg

DRUGS (1)
  1. OPDIVO [Suspect]
     Active Substance: NIVOLUMAB
     Indication: METASTATIC RENAL CELL CARCINOMA
     Dosage: UNK
     Route: 042
     Dates: start: 20190104

REACTIONS (4)
  - Haematuria [Not Recovered/Not Resolved]
  - Flank pain [Not Recovered/Not Resolved]
  - Dysuria [Unknown]
  - Coagulopathy [Not Recovered/Not Resolved]
